FAERS Safety Report 13063204 (Version 4)
Quarter: 2017Q1

REPORT INFORMATION
  Report Type: Spontaneous
  Country: US (occurrence: US)
  Receive Date: 20161227
  Receipt Date: 20170209
  Transmission Date: 20170428
  Serious: No
  Sender: FDA-Public Use
  Company Number: US-B.I. PHARMACEUTICALS,INC./RIDGEFIELD-2016-BI-087334

PATIENT
  Age: 78 Year
  Sex: Female

DRUGS (3)
  1. SPIRIVA [Suspect]
     Active Substance: TIOTROPIUM BROMIDE MONOHYDRATE
     Indication: CHRONIC OBSTRUCTIVE PULMONARY DISEASE
     Dosage: 1 CAPSULE PER DAY;  FORM STRENGTH: 18 MCG; FORMULATION: CAPSULE ADMINISTRATION CORRECT? YES ACTION(S
     Route: 055
     Dates: start: 2015
  2. PROAIR HFA [Concomitant]
     Active Substance: ALBUTEROL SULFATE
     Indication: DYSPNOEA
     Dosage: 3 PUFFS PER DAY;  FORMULATION: INHALATION SPRAY;
     Route: 055
  3. IPRATROPIUM BROMIDE / ALBUTEROL [Concomitant]
     Indication: DYSPNOEA
     Dosage: 1 VIAL THREE TIMES A DAY AS NEEDED;  FORMULATION: INHALATION AEROSOL;
     Route: 055
     Dates: start: 201610

REACTIONS (3)
  - Pulmonary congestion [Recovered/Resolved]
  - Product physical issue [Unknown]
  - Product quality issue [Unknown]

NARRATIVE: CASE EVENT DATE: 201612
